FAERS Safety Report 9515119 (Version 1)
Quarter: 2013Q1

REPORT INFORMATION
  Report Type: Spontaneous
  Country: US (occurrence: None)
  Receive Date: 20130305
  Receipt Date: 20130305
  Transmission Date: 20140127
  Serious: Yes (Hospitalization, Other)
  Sender: FDA-Public Use
  Company Number: 163-21880-12121984

PATIENT
  Age: 90 Year
  Sex: Female
  Weight: 49.9 kg

DRUGS (9)
  1. REVLIMID [Suspect]
     Indication: PLASMA CELL MYELOMA
     Dosage: 15 MG, 1 IN 1 D, PO
     Route: 048
     Dates: start: 20070801
  2. ATENOLOL (ATENOLOL) (TABLETS) [Concomitant]
  3. BABY ASPIRIN (ACETYLSALICYLIC ACID) (TABLETS)? [Concomitant]
  4. CENTRUM SILVER (CENTRUM SILVER) (TABLETS)? [Concomitant]
  5. CALCIUM 500 (CALCIUM) (UNKNOWN) [Concomitant]
  6. POTASSIUM BICARBONATE (POTASSIUM BICARBONATE) (UNKNOWN) [Concomitant]
  7. PROZAC (FLUOXETINE HYDROCHLORIDE) (CAPSULES) [Concomitant]
  8. VITAMIN D (ERGOCALCIFEROL) (UNKNOWN) [Concomitant]
  9. DEXAMETHASONE (DEXAMETHASONE) (UNKNOWN) [Concomitant]

REACTIONS (2)
  - Pelvic fracture [None]
  - Fall [None]
